FAERS Safety Report 9072812 (Version 1)
Quarter: 2013Q1

REPORT INFORMATION
  Report Type: Report from Study
  Country: US (occurrence: US)
  Receive Date: 20130129
  Receipt Date: 20130129
  Transmission Date: 20140127
  Serious: Yes (Other)
  Sender: FDA-Public Use
  Company Number: US-ABBOTT-12P-163-0934057-00

PATIENT
  Age: 38 Year
  Sex: Female
  Weight: 108.96 kg

DRUGS (16)
  1. HUMIRA 40 MG/0.8 ML PEN [Suspect]
     Indication: RHEUMATOID ARTHRITIS
     Route: 058
     Dates: start: 201109, end: 20120222
  2. HUMIRA 40 MG/0.8 ML PEN [Suspect]
     Route: 058
     Dates: start: 20120322, end: 20120405
  3. HUMIRA 40 MG/0.8 ML PEN [Suspect]
     Dates: start: 20120426
  4. METHOTREXATE [Suspect]
     Indication: RHEUMATOID ARTHRITIS
     Dates: end: 20120426
  5. FOLIC ACID [Concomitant]
     Indication: VITAMIN SUPPLEMENTATION
  6. OMEPRAZOLE [Concomitant]
     Indication: GASTRIC DISORDER
  7. NAPRELAN [Concomitant]
     Indication: INFLAMMATION
  8. TRAMADOL [Concomitant]
     Indication: PAIN
  9. CYMBALTA [Concomitant]
     Indication: DEPRESSION
  10. CYMBALTA [Concomitant]
     Indication: PAIN
  11. PRESTIQ [Concomitant]
     Indication: DEPRESSION
  12. PRESTIQ [Concomitant]
     Indication: PAIN
  13. MELATONIN [Concomitant]
     Indication: INSOMNIA
  14. PREDNISONE [Concomitant]
     Indication: RHEUMATOID ARTHRITIS
  15. TIZANIDINE [Concomitant]
     Indication: MUSCLE RELAXANT THERAPY
  16. VOLTAREN GEL [Concomitant]
     Indication: ARTHRALGIA

REACTIONS (5)
  - Cholecystectomy [Recovered/Resolved]
  - Influenza [Recovered/Resolved]
  - Sinusitis [Recovered/Resolved]
  - Arthritis [Recovering/Resolving]
  - Hepatic enzyme increased [Unknown]
